FAERS Safety Report 4466108-X (Version None)
Quarter: 2004Q4

REPORT INFORMATION
  Report Type: 
  Country: None (occurrence: None)
  Receive Date: 20041005
  Receipt Date: 20040126
  Transmission Date: 20050328
  Serious: Yes (Hospitalization)
  Sender: FDA-Public Use
  Company Number: PHFR2004GB00784

PATIENT
  Age: 54 Year
  Sex: Female

DRUGS (1)
  1. DICLOFENAC SODIUM [Suspect]
     Indication: ARTHRALGIA
     Route: 065

REACTIONS (7)
  - ABDOMINAL PAIN LOWER [None]
  - COLONIC STENOSIS [None]
  - FAECAL OCCULT BLOOD POSITIVE [None]
  - FAECALITH [None]
  - GASTROINTESTINAL ISCHAEMIA [None]
  - IRON DEFICIENCY ANAEMIA [None]
  - LARGE INTESTINAL ULCER [None]
